FAERS Safety Report 5044258-7 (Version None)
Quarter: 2006Q2

REPORT INFORMATION
  Report Type: 
  Country: None (occurrence: None)
  Receive Date: 20060601
  Receipt Date: 20060330
  Transmission Date: 20061013
  Serious: No
  Sender: FDA-Public Use
  Company Number: US200603007134

PATIENT
  Age: 69 Year
  Sex: Female

DRUGS (2)
  1. CYMBALTA [Suspect]
     Indication: FIBROMYALGIA
     Dosage: 30 MG
     Dates: start: 20060329, end: 20060330
  2. NEURONTIN [Concomitant]

REACTIONS (3)
  - CHEST DISCOMFORT [None]
  - NASOPHARYNGITIS [None]
  - PARAESTHESIA [None]
